FAERS Safety Report 16265908 (Version 2)
Quarter: 2019Q2

REPORT INFORMATION
  Report Type: Report from Study
  Country: FR (occurrence: FR)
  Receive Date: 20190502
  Receipt Date: 20190603
  Transmission Date: 20190711
  Serious: Yes (Other)
  Sender: FDA-Public Use
  Company Number: PHHO2019FR004185

PATIENT
  Age: 58 Year
  Sex: Male
  Weight: 94.8 kg

DRUGS (13)
  1. CFZ533 [Suspect]
     Active Substance: ISCALIMAB
     Indication: RENAL TRANSPLANT
     Dosage: 4 ML, UNK
     Route: 058
     Dates: start: 20190227
  2. LANSOPRAZOLE. [Concomitant]
     Active Substance: LANSOPRAZOLE
     Indication: ABDOMINAL PAIN
     Dosage: UNK
     Route: 065
     Dates: start: 20190313, end: 20190410
  3. MYCOPHENOLATE MOFETIL. [Suspect]
     Active Substance: MYCOPHENOLATE MOFETIL
     Indication: RENAL TRANSPLANT
     Dosage: 1 G, BID
     Route: 048
     Dates: start: 20190227
  4. AMLOR [Concomitant]
     Active Substance: AMLODIPINE BESYLATE
     Indication: HYPERTENSION
     Dosage: UNK
     Route: 065
     Dates: start: 20190305
  5. ROVALCYTE [Concomitant]
     Active Substance: VALGANCICLOVIR HYDROCHLORIDE
     Indication: PROPHYLAXIS
     Dosage: UNK
     Route: 065
     Dates: start: 20190302, end: 20190410
  6. BACTRIM [Concomitant]
     Active Substance: SULFAMETHOXAZOLE\TRIMETHOPRIM
     Indication: PROPHYLAXIS
  7. FERINJECT [Concomitant]
     Active Substance: FERRIC CARBOXYMALTOSE
     Indication: NORMOCYTIC ANAEMIA
     Dosage: UNK
     Route: 065
     Dates: start: 20190327, end: 20190327
  8. EUPRESSYL [Concomitant]
     Active Substance: URAPIDIL
     Indication: HYPERTENSION
     Dosage: UNK
     Route: 065
     Dates: start: 20190415
  9. CORTANCYL [Concomitant]
     Active Substance: PREDNISONE
     Dosage: UNK
     Route: 065
     Dates: start: 20190403, end: 20190412
  10. BACTRIM [Concomitant]
     Active Substance: SULFAMETHOXAZOLE\TRIMETHOPRIM
     Indication: PROPHYLAXIS
     Dosage: UNK
     Route: 065
     Dates: start: 20190302
  11. LANSOPRAZOLE. [Concomitant]
     Active Substance: LANSOPRAZOLE
     Indication: GASTROOESOPHAGEAL REFLUX DISEASE
  12. ROVALCYTE [Concomitant]
     Active Substance: VALGANCICLOVIR HYDROCHLORIDE
     Indication: PROPHYLAXIS
     Dosage: UNK
     Route: 065
     Dates: start: 20190412
  13. CORTANCYL [Concomitant]
     Active Substance: PREDNISONE
     Indication: PROPHYLAXIS
     Dosage: UNK
     Route: 065
     Dates: start: 20190313, end: 20190402

REACTIONS (1)
  - Kidney transplant rejection [Not Recovered/Not Resolved]

NARRATIVE: CASE EVENT DATE: 20190410
